FAERS Safety Report 22000192 (Version 7)
Quarter: 2023Q1

REPORT INFORMATION
  Report Type: Spontaneous
  Country: DK (occurrence: DK)
  Receive Date: 20230216
  Receipt Date: 20230315
  Transmission Date: 20230418
  Serious: Yes (Life-Threatening, Hospitalization, Other)
  Sender: FDA-Public Use
  Company Number: DK-TAKEDA-2023TUS002291

PATIENT
  Age: 62 Year
  Sex: Male

DRUGS (15)
  1. PANTOPRAZOLE [Suspect]
     Active Substance: PANTOPRAZOLE
     Dosage: 80 MILLIGRAM, QD
     Route: 065
  2. OCTREOTIDE ACETATE [Suspect]
     Active Substance: OCTREOTIDE ACETATE
     Dosage: 100 UG/DAY
     Route: 065
  3. LEVETIRACETAM [Suspect]
     Active Substance: LEVETIRACETAM
     Dosage: UNK
     Route: 065
  4. ENTYVIO [Suspect]
     Active Substance: VEDOLIZUMAB
     Indication: Enterocolitis
     Dosage: 300 MILLIGRAM
     Route: 065
  5. OPIUM [Suspect]
     Active Substance: OPIUM
     Dosage: 5 MG UP TO 12 TIMES/DAY
     Route: 065
  6. DIETARY SUPPLEMENT [Suspect]
     Active Substance: DIETARY SUPPLEMENT
     Dosage: UNK
     Route: 065
  7. CHOLESTYRAMINE [Suspect]
     Active Substance: CHOLESTYRAMINE
     Dosage: 80 MILLIGRAM, QD
     Route: 065
  8. LOPERAMIDE [Suspect]
     Active Substance: LOPERAMIDE
     Dosage: 24 MG/DAY
     Route: 065
  9. CEFUROXIME [Suspect]
     Active Substance: CEFUROXIME
     Dosage: 1.5 G, 3X/DAY
     Route: 065
  10. CORTISONE [Suspect]
     Active Substance: CORTISONE
     Dosage: UNK
     Route: 065
  11. TRIMETHOPRIM [Suspect]
     Active Substance: TRIMETHOPRIM
     Dosage: 200 MG, 2X/DAY
     Route: 065
  12. IPILIMUMAB [Suspect]
     Active Substance: IPILIMUMAB
     Dosage: UNK
     Route: 065
  13. PEMBROLIZUMAB [Suspect]
     Active Substance: PEMBROLIZUMAB
     Dosage: UNK
     Route: 065
  14. NIVOLUMAB [Suspect]
     Active Substance: NIVOLUMAB
     Dosage: UNK
     Route: 065
  15. PREDNISOLONE [Suspect]
     Active Substance: PREDNISOLONE
     Dosage: 25 MG
     Route: 065

REACTIONS (21)
  - Intestinal obstruction [Recovered/Resolved]
  - Epilepsy [Recovered/Resolved]
  - Colitis microscopic [Unknown]
  - Acute kidney injury [Recovered/Resolved]
  - Erosive duodenitis [Unknown]
  - Diarrhoea [Unknown]
  - Faecal calprotectin increased [Recovered/Resolved]
  - Apoptosis [Unknown]
  - Oedema [Recovered/Resolved]
  - Inflammation [Unknown]
  - Duodenitis [Recovered/Resolved]
  - C-reactive protein increased [Unknown]
  - Enteritis [Unknown]
  - Intestinal intraepithelial lymphocytes increased [Unknown]
  - Escherichia urinary tract infection [Recovered/Resolved]
  - Therapy cessation [Recovered/Resolved]
  - Microvillous inclusion disease [Unknown]
  - Lymphocyte count increased [Unknown]
  - Cryptitis [Unknown]
  - Probiotic therapy [Recovered/Resolved]
  - Drug ineffective [Unknown]
